FAERS Safety Report 4429316-X (Version None)
Quarter: 2004Q3

REPORT INFORMATION
  Report Type: 
  Country: None (occurrence: None)
  Receive Date: 20040819
  Receipt Date: 20040621
  Transmission Date: 20050211
  Serious: Yes (Death, Hospitalization)
  Sender: FDA-Public Use
  Company Number: US-BRISTOL-MYERS SQUIBB COMPANY-12620506

PATIENT
  Age: 53 Year
  Sex: Male
  Weight: 73 kg

DRUGS (8)
  1. CARBOPLATIN [Suspect]
     Indication: NEOPLASM MALIGNANT
     Dosage: THERAPY DATES: 21-JUN TO 12-JUL-2004
     Route: 042
     Dates: start: 20040712, end: 20040712
  2. TAXOL [Suspect]
     Indication: NEOPLASM MALIGNANT
     Dosage: THERAPY DATES: 21-JUN TO 12-JUL-2004
     Route: 042
     Dates: start: 20040712, end: 20040712
  3. CELEBREX [Suspect]
     Indication: NEOPLASM MALIGNANT
     Route: 048
     Dates: start: 20040718, end: 20040718
  4. RADIATION THERAPY [Concomitant]
     Indication: NEOPLASM MALIGNANT
  5. ASPIRIN [Concomitant]
  6. ATENOLOL [Concomitant]
  7. HYDROCHLOROTHIAZIDE [Concomitant]
  8. LORTAB [Concomitant]
     Dosage: ELIXER

REACTIONS (5)
  - DEATH [None]
  - DEHYDRATION [None]
  - DIARRHOEA [None]
  - NAUSEA [None]
  - VOMITING [None]
